FAERS Safety Report 5029601-7 (Version None)
Quarter: 2006Q2

REPORT INFORMATION
  Report Type: 
  Country: None (occurrence: None)
  Receive Date: 20060620
  Receipt Date: 20060619
  Transmission Date: 20061013
  Serious: Yes (Other)
  Sender: FDA-Public Use
  Company Number: 200613284EU

PATIENT
  Sex: Female

DRUGS (4)
  1. NICORETTE [Suspect]
     Indication: SMOKING CESSATION THERAPY
     Dosage: 2MG SEE DOSAGE TEXT
     Route: 002
     Dates: start: 19870101
  2. LORAZEPAM [Concomitant]
     Indication: ANXIETY
     Dosage: 1TAB AS REQUIRED
     Route: 048
  3. VENLAFAXINE HCL [Concomitant]
     Indication: DEPRESSION
  4. FLUTICASONE PROPIONATE [Concomitant]
     Indication: MULTIPLE ALLERGIES

REACTIONS (2)
  - DRUG DEPENDENCE [None]
  - INTENTIONAL DRUG MISUSE [None]
